FAERS Safety Report 4462277-6 (Version None)
Quarter: 2004Q3

REPORT INFORMATION
  Report Type: 
  Country: None (occurrence: None)
  Receive Date: 20040929
  Receipt Date: 20040917
  Transmission Date: 20050211
  Serious: Yes (Hospitalization)
  Sender: FDA-Public Use
  Company Number: BE-GLAXOSMITHKLINE-B0346376A

PATIENT
  Age: 5 Year
  Sex: Male
  Weight: 20 kg

DRUGS (3)
  1. CEFUROXIME AXETIL [Suspect]
     Dates: end: 20040701
  2. CLAMOXYL [Concomitant]
  3. INFANRIX-IPV [Concomitant]
     Route: 030

REACTIONS (14)
  - ALANINE AMINOTRANSFERASE INCREASED [None]
  - ASPARTATE AMINOTRANSFERASE INCREASED [None]
  - BLOOD BILIRUBIN INCREASED [None]
  - BLOOD CREATININE DECREASED [None]
  - BLOOD FIBRINOGEN INCREASED [None]
  - BLOOD LACTATE DEHYDROGENASE INCREASED [None]
  - BODY TEMPERATURE INCREASED [None]
  - C-REACTIVE PROTEIN INCREASED [None]
  - COAGULOPATHY [None]
  - EOSINOPHILIA [None]
  - HEPATITIS [None]
  - INTERNATIONAL NORMALISED RATIO INCREASED [None]
  - THROMBOCYTOPENIA [None]
  - VOMITING [None]
